FAERS Safety Report 20456751 (Version 1)
Quarter: 2022Q1

REPORT INFORMATION
  Report Type: Report from Study
  Country: CA (occurrence: CA)
  Receive Date: 20220210
  Receipt Date: 20220210
  Transmission Date: 20220423
  Serious: Yes (Other)
  Sender: FDA-Public Use
  Company Number: CA-OTSUKA-2021_024869

PATIENT
  Sex: Male

DRUGS (1)
  1. CEDAZURIDINE\DECITABINE [Suspect]
     Active Substance: CEDAZURIDINE\DECITABINE
     Indication: Myelodysplastic syndrome
     Dosage: (35 MG OF DECITABINE AND 100 MG OF CEDAZURIDINE)
     Route: 065
     Dates: start: 20210708

REACTIONS (16)
  - Blast cell count increased [Unknown]
  - Acute myeloid leukaemia [Unknown]
  - Dry mouth [Unknown]
  - Hypersomnia [Unknown]
  - Dyspepsia [Unknown]
  - Flatulence [Unknown]
  - Polycythaemia [Unknown]
  - Varicose vein [Unknown]
  - White blood cell count abnormal [Unknown]
  - Haemoglobin abnormal [Unknown]
  - Paraesthesia [Unknown]
  - Abdominal pain [Unknown]
  - Abdominal discomfort [Unknown]
  - Fatigue [Unknown]
  - Neutrophil count decreased [Not Recovered/Not Resolved]
  - Therapy interrupted [Unknown]
